FAERS Safety Report 12188502 (Version 1)
Quarter: 2016Q1

REPORT INFORMATION
  Report Type: Spontaneous
  Country: US (occurrence: US)
  Receive Date: 20160317
  Receipt Date: 20160317
  Transmission Date: 20160526
  Serious: No
  Sender: FDA-Public Use
  Company Number: US-TEVA-637909ACC

PATIENT
  Age: 38 Year
  Sex: Female
  Weight: 72.64 kg

DRUGS (2)
  1. AFTERA [Suspect]
     Active Substance: LEVONORGESTREL
     Indication: POST COITAL CONTRACEPTION
     Route: 065
  2. AFTERA [Suspect]
     Active Substance: LEVONORGESTREL
     Dates: start: 20160215

REACTIONS (2)
  - Menstruation irregular [Recovered/Resolved]
  - Intentional product misuse [Unknown]

NARRATIVE: CASE EVENT DATE: 20160215
